FAERS Safety Report 7108872-7 (Version None)
Quarter: 2010Q4

REPORT INFORMATION
  Report Type: 
  Country: None (occurrence: None)
  Receive Date: 20101117
  Receipt Date: 20101109
  Transmission Date: 20110411
  Serious: Yes (Hospitalization)
  Sender: FDA-Public Use
  Company Number: FR-PFIZER INC-FR-WYE-G06805810

PATIENT
  Age: 55 Year
  Sex: Female
  Weight: 59 kg

DRUGS (6)
  1. MYLOTARG [Suspect]
     Indication: ACUTE MYELOID LEUKAEMIA
     Dosage: 4.8 MG, ONE PER CYCLE
     Route: 042
     Dates: start: 20101008, end: 20101011
  2. DOXORUBICIN HCL [Suspect]
     Indication: ACUTE MYELOID LEUKAEMIA
     Dosage: UNK
     Route: 042
     Dates: start: 20100101
  3. ARACYTINE [Suspect]
     Indication: ACUTE MYELOID LEUKAEMIA
     Dosage: UNK
     Route: 042
     Dates: start: 20101008, end: 20101010
  4. DAUNORUBICIN HCL [Suspect]
     Indication: ACUTE MYELOID LEUKAEMIA
     Dosage: UNK
     Route: 042
     Dates: start: 20101008, end: 20101010
  5. ATARAX [Concomitant]
     Indication: PREMEDICATION
  6. PERFALGAN [Concomitant]
     Indication: PREMEDICATION

REACTIONS (1)
  - TREMOR [None]
